FAERS Safety Report 4268791-0 (Version None)
Quarter: 2004Q1

REPORT INFORMATION
  Report Type: 
  Country: None (occurrence: None)
  Receive Date: 20040108
  Receipt Date: 20031230
  Transmission Date: 20041129
  Serious: Yes (Hospitalization, Other)
  Sender: FDA-Public Use
  Company Number: 2004000094

PATIENT
  Age: 85 Year
  Sex: Female
  Weight: 47.1741 kg

DRUGS (11)
  1. TIKOSYN [Suspect]
     Indication: ATRIAL FIBRILLATION
     Dosage: 250 MCG (BID), ORAL
     Route: 048
  2. SERTRALINE HCL [Concomitant]
  3. FUROSEMIDE [Concomitant]
  4. DIGOXIN [Concomitant]
  5. ACETYLSALICYLIC ACID SRT [Concomitant]
  6. CLOPIDOGREL BISULFATE [Concomitant]
  7. METOCLOPRAMIDE [Concomitant]
  8. METOPROLOL SUCCINATE [Concomitant]
  9. PANTOPRAZOLE (PANTOPRAZOLE) [Concomitant]
  10. LISINOPRIL [Concomitant]
  11. PREDNISONE [Concomitant]

REACTIONS (6)
  - ACTIVATED PARTIAL THROMBOPLASTIN TIME SHORTENED [None]
  - BLOOD SODIUM DECREASED [None]
  - BLOOD UREA INCREASED [None]
  - BLOOD UREA NITROGEN/CREATININE RATIO INCREASED [None]
  - CARDIOACTIVE DRUG LEVEL DECREASED [None]
  - CEREBROVASCULAR ACCIDENT [None]
